FAERS Safety Report 24850024 (Version 1)
Quarter: 2025Q1

REPORT INFORMATION
  Report Type: Spontaneous
  Country: US (occurrence: None)
  Receive Date: 20250115
  Receipt Date: 20250115
  Transmission Date: 20250409
  Serious: Yes (Disabling, Other)
  Sender: FDA-CTU
  Company Number: None

PATIENT
  Age: 59 Year
  Sex: Female
  Weight: 83.7 kg

DRUGS (5)
  1. TOPAMAX [Suspect]
     Active Substance: TOPIRAMATE
     Indication: Migraine
     Route: 048
  2. UNSPECIFIED INGREDIENT [Suspect]
     Active Substance: UNSPECIFIED INGREDIENT
     Indication: Prophylaxis against dehydration
     Route: 048
  3. PAXIL [Suspect]
     Active Substance: PAROXETINE HYDROCHLORIDE
  4. DULCOLAX NOS [Suspect]
     Active Substance: UNSPECIFIED INGREDIENT
  5. TYLENOL [Concomitant]
     Active Substance: ACETAMINOPHEN

REACTIONS (34)
  - Drug screen positive [None]
  - Endocrine disorder [None]
  - Product compounding quality issue [None]
  - Exposure to contaminated water [None]
  - Swelling [None]
  - Hypertension [None]
  - Arthralgia [None]
  - Gastrointestinal disorder [None]
  - Weight increased [None]
  - Therapy cessation [None]
  - Dizziness [None]
  - Alopecia [None]
  - Meralgia paraesthetica [None]
  - Raynaud^s phenomenon [None]
  - Palpitations [None]
  - Headache [None]
  - Alopecia [None]
  - Body fat disorder [None]
  - Eye irritation [None]
  - Muscle spasms [None]
  - Tongue disorder [None]
  - Food contamination [None]
  - Paraesthesia [None]
  - Hypoaesthesia [None]
  - Hypoaesthesia oral [None]
  - Neck pain [None]
  - Tremor [None]
  - Bedridden [None]
  - Constipation [None]
  - Contusion [None]
  - Hyperhidrosis [None]
  - Restless legs syndrome [None]
  - Product tampering [None]
  - Victim of crime [None]

NARRATIVE: CASE EVENT DATE: 20230405
